FAERS Safety Report 22319817 (Version 1)
Quarter: 2023Q2

REPORT INFORMATION
  Report Type: Spontaneous
  Country: US (occurrence: US)
  Receive Date: 20230515
  Receipt Date: 20230515
  Transmission Date: 20230721
  Serious: No
  Sender: FDA-Public Use
  Company Number: US-BEH-2023158488

PATIENT
  Sex: Male

DRUGS (3)
  1. HIZENTRA [Suspect]
     Active Substance: HUMAN IMMUNOGLOBULIN G
     Indication: Humoral immune defect
     Dosage: 3 GRAM, QW
     Route: 058
     Dates: start: 201601
  2. HIZENTRA [Suspect]
     Active Substance: HUMAN IMMUNOGLOBULIN G
     Dosage: 4 GRAM, QW
     Route: 058
     Dates: start: 201601
  3. DUPIXENT [Concomitant]
     Active Substance: DUPILUMAB

REACTIONS (3)
  - Pain [Unknown]
  - Pruritus [Unknown]
  - Swelling [Unknown]
